FAERS Safety Report 8765322 (Version 1)
Quarter: 2012Q4

REPORT INFORMATION
  Report Type: 
  Country: US (occurrence: US)
  Receive Date: 20120831
  Receipt Date: 20120831
  Transmission Date: 20130627
  Serious: Yes (Other)
  Sender: FDA-Public Use
  Company Number: US-UCBSA-064367

PATIENT
  Age: 12 Year
  Sex: Female

DRUGS (1)
  1. CIMZIA [Suspect]
     Indication: CROHN^S DISEASE
     Dosage: 2 SYRINGES 200 MG EACH EVERY 4 WEEKS
     Route: 058
     Dates: start: 20120609, end: 20120808

REACTIONS (1)
  - Urticaria [Not Recovered/Not Resolved]
